FAERS Safety Report 15093778 (Version 2)
Quarter: 2018Q3

REPORT INFORMATION
  Report Type: Report from Study
  Country: US (occurrence: US)
  Receive Date: 20180629
  Receipt Date: 20180712
  Transmission Date: 20181010
  Serious: Yes (Hospitalization, Disabling)
  Sender: FDA-Public Use
  Company Number: US-ACTELION-A-US2017-160438

PATIENT
  Age: 72 Year
  Sex: Male

DRUGS (3)
  1. SPIRONOLACTONE. [Concomitant]
     Active Substance: SPIRONOLACTONE
  2. OPSUMIT [Suspect]
     Active Substance: MACITENTAN
     Indication: PULMONARY ARTERIAL HYPERTENSION
     Dosage: 10 MG, QD
     Route: 048
     Dates: start: 20170515
  3. BUMEX [Concomitant]
     Active Substance: BUMETANIDE

REACTIONS (10)
  - Condition aggravated [Unknown]
  - Fluid retention [Recovered/Resolved]
  - Therapy non-responder [Unknown]
  - Chest discomfort [Unknown]
  - Malaise [Unknown]
  - Cardiac disorder [Unknown]
  - Therapy cessation [Unknown]
  - Pulmonary arterial hypertension [Unknown]
  - Nasopharyngitis [Unknown]
  - Cardiac failure congestive [Recovered/Resolved]

NARRATIVE: CASE EVENT DATE: 20170928
